FAERS Safety Report 18812356 (Version 5)
Quarter: 2021Q1

REPORT INFORMATION
  Report Type: Spontaneous
  Country: US (occurrence: US)
  Receive Date: 20210130
  Receipt Date: 20210310
  Transmission Date: 20210419
  Serious: Yes (Death, Hospitalization, Other)
  Sender: FDA-Public Use
  Company Number: US-UNITED THERAPEUTICS-UNT-2021-001830

PATIENT
  Age: 51 Year
  Sex: Female
  Weight: 80.5 kg

DRUGS (3)
  1. REMODULIN [Suspect]
     Active Substance: TREPROSTINIL
     Indication: PULMONARY ARTERIAL HYPERTENSION
     Dosage: UNK, CONTINUING
     Route: 058
     Dates: start: 20210103
  2. REMODULIN [Suspect]
     Active Substance: TREPROSTINIL
     Dosage: 0.0177 ?G/KG, CONTINUING
     Route: 058
     Dates: end: 20210220
  3. ADCIRCA [Suspect]
     Active Substance: TADALAFIL
     Indication: PULMONARY ARTERIAL HYPERTENSION
     Dosage: 40 MG DAILY
     Route: 048
     Dates: start: 20190131, end: 20210220

REACTIONS (6)
  - Renal failure [Fatal]
  - Pulmonary arterial hypertension [Fatal]
  - Right ventricular failure [Fatal]
  - Pneumonia aspiration [Fatal]
  - Respiratory failure [Fatal]
  - Acute respiratory distress syndrome [Fatal]

NARRATIVE: CASE EVENT DATE: 20210128
